FAERS Safety Report 23773202 (Version 3)
Quarter: 2024Q3

REPORT INFORMATION
  Report Type: Spontaneous
  Country: CO (occurrence: CO)
  Receive Date: 20240423
  Receipt Date: 20240904
  Transmission Date: 20241016
  Serious: No
  Sender: PFIZER
  Company Number: CO-PFIZER INC-202400079998

PATIENT
  Age: 13 Year
  Sex: Male

DRUGS (1)
  1. GENOTROPIN [Suspect]
     Active Substance: SOMATROPIN
     Dosage: 1 MG
     Dates: start: 20240322

REACTIONS (3)
  - Device leakage [Recovered/Resolved]
  - Device use error [Recovered/Resolved]
  - Device use confusion [Recovered/Resolved]

NARRATIVE: CASE EVENT DATE: 20240402
